FAERS Safety Report 17753829 (Version 1)
Quarter: 2020Q2

REPORT INFORMATION
  Report Type: Spontaneous
  Country: GB (occurrence: GB)
  Receive Date: 20200506
  Receipt Date: 20200506
  Transmission Date: 20200714
  Serious: Yes (Other)
  Sender: FDA-Public Use
  Company Number: GB-NOVOPROD-725689

PATIENT
  Age: 51 Year
  Sex: Female
  Weight: 77 kg

DRUGS (7)
  1. LEVOTHYROXINE SODIUM. [Suspect]
     Active Substance: LEVOTHYROXINE SODIUM
     Indication: HYPOTHYROIDISM
     Route: 048
     Dates: start: 20200408
  2. ACETYLSALICYLIC ACID [Concomitant]
     Active Substance: ASPIRIN
     Dosage: UNK
  3. LIOTHYRONINE SODIUM. [Suspect]
     Active Substance: LIOTHYRONINE SODIUM
     Indication: HYPOTHYROIDISM
     Dosage: 10 ?G
     Route: 048
     Dates: start: 20200321
  4. COLLAGEN MARINE [Concomitant]
     Dosage: UNK
  5. RESVERATROL [Concomitant]
     Active Substance: DIETARY SUPPLEMENT\RESVERATROL
     Dosage: UNK
  6. RHODIOLA [RHODIOLA ROSEA] [Concomitant]
     Dosage: UNK
  7. KLIOFEM [Suspect]
     Active Substance: ESTRADIOL\NORETHINDRONE ACETATE
     Indication: MENOPAUSAL SYMPTOMS
     Dosage: 2 MG
     Route: 048
     Dates: start: 20200322

REACTIONS (10)
  - Ocular hyperaemia [Not Recovered/Not Resolved]
  - Vision blurred [Not Recovered/Not Resolved]
  - Head discomfort [Unknown]
  - Mydriasis [Not Recovered/Not Resolved]
  - Facial paresis [Not Recovered/Not Resolved]
  - Hypoaesthesia [Unknown]
  - Anxiety [Not Recovered/Not Resolved]
  - Suicidal ideation [Not Recovered/Not Resolved]
  - Irritability [Not Recovered/Not Resolved]
  - Ocular icterus [Not Recovered/Not Resolved]

NARRATIVE: CASE EVENT DATE: 20200410
